FAERS Safety Report 26158099 (Version 1)
Quarter: 2025Q4

REPORT INFORMATION
  Report Type: Spontaneous
  Country: US (occurrence: None)
  Receive Date: 20251215
  Receipt Date: 20251215
  Transmission Date: 20260118
  Serious: No
  Sender: FDA-CTU
  Company Number: None

PATIENT
  Age: 77 Year
  Sex: Male

DRUGS (1)
  1. DONANEMAB-AZBT [Suspect]
     Active Substance: DONANEMAB-AZBT
     Indication: Product used for unknown indication
     Dates: start: 20251117, end: 20251117

REACTIONS (2)
  - Amyloid related imaging abnormality-oedema/effusion [None]
  - Amyloid related imaging abnormality-microhaemorrhages and haemosiderin deposits [None]

NARRATIVE: CASE EVENT DATE: 20251204
